FAERS Safety Report 13385765 (Version 1)
Quarter: 2017Q1

REPORT INFORMATION
  Report Type: Spontaneous
  Country: FR (occurrence: FR)
  Receive Date: 20170330
  Receipt Date: 20170330
  Transmission Date: 20170429
  Serious: Yes (Other)
  Sender: FDA-Public Use
  Company Number: FR-SUN PHARMACEUTICAL INDUSTRIES LTD-2017RR-136472

PATIENT
  Age: 51 Year
  Sex: Female

DRUGS (3)
  1. LETROZOLE. [Suspect]
     Active Substance: LETROZOLE
     Indication: METASTASES TO BONE
     Dosage: UNK
     Route: 065
  2. EVEROLIMUS [Suspect]
     Active Substance: EVEROLIMUS
     Indication: METASTASES TO BONE
     Dosage: 10 MG, DAILY
     Route: 065
     Dates: start: 201301
  3. EXEMESTANE. [Suspect]
     Active Substance: EXEMESTANE
     Indication: METASTASES TO BONE
     Dosage: 25 MG, DAILY
     Route: 065
     Dates: start: 201301

REACTIONS (2)
  - Hepatitis B [Recovered/Resolved]
  - Disease progression [Unknown]
